FAERS Safety Report 10565960 (Version 1)
Quarter: 2014Q4

REPORT INFORMATION
  Report Type: Spontaneous
  Country: US (occurrence: None)
  Receive Date: 20141104
  Receipt Date: 20141104
  Transmission Date: 20150529
  Serious: Yes (Life-Threatening, Hospitalization, Disabling)
  Sender: FDA-Public Use
  Company Number: None

PATIENT
  Age: 47 Year
  Sex: Female
  Weight: 77.11 kg

DRUGS (1)
  1. LISINOPRIL AND HYDROCHLOROTHIAZIDE [Suspect]
     Active Substance: HYDROCHLOROTHIAZIDE\LISINOPRIL
     Indication: BLOOD PRESSURE
     Dosage: 2X   ONCE DAILY TAKEN BY MOUTH
     Route: 048
     Dates: start: 20140426, end: 20140426

REACTIONS (2)
  - Anaphylactic shock [None]
  - Nervous system disorder [None]

NARRATIVE: CASE EVENT DATE: 20140426
